FAERS Safety Report 10413193 (Version 1)
Quarter: 2014Q3

REPORT INFORMATION
  Report Type: Spontaneous
  Country: US (occurrence: US)
  Receive Date: 20140827
  Receipt Date: 20140827
  Transmission Date: 20150326
  Serious: No
  Sender: FDA-Public Use
  Company Number: US-ASTRAZENECA-2014SE60989

PATIENT
  Age: 58 Year
  Sex: Female

DRUGS (2)
  1. SEROQUEL [Suspect]
     Active Substance: QUETIAPINE FUMARATE
     Dosage: DISSOLVED A TABLET IN WATER AND USED AN EYE DROPPER TO DISPENSE A MICRO DOSE
     Route: 048
  2. SEROQUEL [Suspect]
     Active Substance: QUETIAPINE FUMARATE
     Dosage: QUARTER OF A TABLET
     Route: 048

REACTIONS (4)
  - Therapeutic response changed [Unknown]
  - Haemorrhoids [Unknown]
  - Off label use [Unknown]
  - Intentional product misuse [Unknown]
